FAERS Safety Report 8419561-0 (Version None)
Quarter: 2012Q2

REPORT INFORMATION
  Report Type: 
  Country: None (occurrence: None)
  Receive Date: 20120607
  Receipt Date: 20120528
  Transmission Date: 20120825
  Serious: Yes (Hospitalization)
  Sender: FDA-Public Use
  Company Number: AU-FRI-1000030788

PATIENT
  Age: 25 Year
  Sex: Female

DRUGS (4)
  1. CLOZAPINE [Suspect]
     Dosage: 300 MG
  2. VERAPAMIL HCL [Concomitant]
  3. CITALOPRAM HYDROBROMIDE [Suspect]
  4. VALPROATE SODIUM [Suspect]

REACTIONS (2)
  - MYOCARDITIS [None]
  - URINARY INCONTINENCE [None]
